FAERS Safety Report 10049770 (Version 1)
Quarter: 2014Q2

REPORT INFORMATION
  Report Type: Report from Study
  Country: US (occurrence: US)
  Receive Date: 20140401
  Receipt Date: 20140401
  Transmission Date: 20141212
  Serious: Yes (Other)
  Sender: FDA-Public Use
  Company Number: US-ROCHE-1372457

PATIENT
  Age: 12 Year
  Sex: Female
  Weight: 22.4 kg

DRUGS (2)
  1. NUTROPIN AQ [Suspect]
     Indication: GROWTH HORMONE DEFICIENCY
     Dosage: 0.9-1.0 MG
     Route: 058
     Dates: start: 201111, end: 201304
  2. NUTROPIN AQ [Suspect]
     Route: 058
     Dates: start: 201308

REACTIONS (6)
  - Scoliosis [Unknown]
  - Convulsion [Unknown]
  - Insulin-like growth factor decreased [Unknown]
  - Weight decreased [Unknown]
  - Parkinsonian rest tremor [Unknown]
  - Myoclonus [Unknown]
